FAERS Safety Report 6440141-0 (Version None)
Quarter: 2009Q4

REPORT INFORMATION
  Report Type: 
  Country: None (occurrence: None)
  Receive Date: 20091113
  Receipt Date: 20090213
  Transmission Date: 20100525
  Serious: No
  Sender: FDA-Public Use
  Company Number: A0768682A

PATIENT
  Age: 71 Year
  Sex: Female

DRUGS (4)
  1. COREG [Suspect]
     Indication: HYPERTENSION
     Route: 048
  2. JANUVIA [Concomitant]
  3. TEKTURNA [Concomitant]
  4. LUMIGAN [Concomitant]

REACTIONS (1)
  - DRUG INEFFECTIVE [None]
